FAERS Safety Report 21165879 (Version 2)
Quarter: 2022Q3

REPORT INFORMATION
  Report Type: Spontaneous
  Country: CN (occurrence: CN)
  Receive Date: 20220803
  Receipt Date: 20220811
  Transmission Date: 20221027
  Serious: Yes (Hospitalization, Other)
  Sender: FDA-Public Use
  Company Number: CN-BoehringerIngelheim-2022-BI-184381

PATIENT
  Age: 81 Year
  Sex: Female
  Weight: 45 kg

DRUGS (9)
  1. DABIGATRAN ETEXILATE [Suspect]
     Active Substance: DABIGATRAN ETEXILATE
     Indication: Atrial fibrillation
     Route: 048
  2. Digoxin Tablets [Concomitant]
     Indication: Atrial fibrillation
     Route: 048
  3. ACARBOSE [Concomitant]
     Active Substance: ACARBOSE
     Indication: Type 2 diabetes mellitus
     Route: 048
  4. Gliclazide Sustained-release Tablets [Concomitant]
     Indication: Type 2 diabetes mellitus
     Route: 048
  5. Insulin Glargine Injection [Concomitant]
     Indication: Type 2 diabetes mellitus
     Route: 058
  6. METOPROLOL TARTRATE [Concomitant]
     Active Substance: METOPROLOL TARTRATE
     Indication: Hypertension
     Route: 048
  7. Valsartan capsules [Concomitant]
     Indication: Hypertension
     Route: 048
  8. Nifedipine Controlled-Release Tablets [Concomitant]
     Indication: Hypertension
     Route: 048
  9. SPIRONOLACTONE [Concomitant]
     Active Substance: SPIRONOLACTONE
     Indication: Hypertension
     Route: 048

REACTIONS (4)
  - Muscular weakness [Recovering/Resolving]
  - Gastrointestinal haemorrhage [Recovering/Resolving]
  - Diabetic ketoacidosis [Unknown]
  - Anaemia [Recovering/Resolving]

NARRATIVE: CASE EVENT DATE: 20191227
